FAERS Safety Report 15570049 (Version 1)
Quarter: 2018Q4

REPORT INFORMATION
  Report Type: Spontaneous
  Country: FR (occurrence: FR)
  Receive Date: 20181031
  Receipt Date: 20181031
  Transmission Date: 20190205
  Serious: Yes (Other)
  Sender: FDA-Public Use
  Company Number: FR-AUROBINDO-AUR-APL-2018-048947

PATIENT
  Age: 43 Year
  Sex: Female

DRUGS (3)
  1. REBIF [Suspect]
     Active Substance: INTERFERON BETA-1A
     Indication: MULTIPLE SCLEROSIS
     Dosage: 44 MICROGRAM
     Route: 065
     Dates: start: 2012
  2. REBIF [Suspect]
     Active Substance: INTERFERON BETA-1A
     Dosage: START DATE: 15 JUL 2013
     Route: 065
     Dates: end: 201601
  3. IBUPROFEN. [Suspect]
     Active Substance: IBUPROFEN
     Indication: PRODUCT USED FOR UNKNOWN INDICATION
     Dosage: UNK
     Route: 065

REACTIONS (4)
  - Abortion spontaneous [Recovered/Resolved]
  - Drug hypersensitivity [Unknown]
  - Maternal exposure during pregnancy [Recovered/Resolved]
  - Influenza like illness [Unknown]

NARRATIVE: CASE EVENT DATE: 2012
